FAERS Safety Report 5418538-7 (Version None)
Quarter: 2007Q3

REPORT INFORMATION
  Report Type: 
  Country: None (occurrence: None)
  Receive Date: 20070718
  Receipt Date: 20070207
  Transmission Date: 20080115
  Serious: Yes (Other)
  Sender: FDA-Public Use
  Company Number: 2006093712

PATIENT
  Age: 67 Year
  Sex: Male
  Weight: 90.7 kg

DRUGS (3)
  1. CELEBREX [Suspect]
     Indication: ARTHRITIS
     Dosage: 200 MG (200 MG, 1 IN 1 D)
     Dates: start: 20030728
  2. CELEBREX [Suspect]
     Indication: INFLAMMATION
     Dosage: 200 MG (200 MG, 1 IN 1 D)
     Dates: start: 20030728
  3. CELEBREX [Suspect]
     Indication: PAIN
     Dosage: 200 MG (200 MG, 1 IN 1 D)
     Dates: start: 20030728

REACTIONS (2)
  - CEREBROVASCULAR ACCIDENT [None]
  - DEPRESSION [None]
